FAERS Safety Report 6680087-6 (Version None)
Quarter: 2010Q2

REPORT INFORMATION
  Report Type: 
  Country: None (occurrence: None)
  Receive Date: 20100413
  Receipt Date: 20100413
  Transmission Date: 20101027
  Serious: Yes (Other)
  Sender: FDA-Public Use
  Company Number: IN-BAXTER-2010BH009159

PATIENT
  Age: 52 Year
  Sex: Male

DRUGS (3)
  1. DEXTROSE 5% [Suspect]
     Indication: THERMAL BURN
     Route: 042
     Dates: start: 20100402, end: 20100402
  2. DEXTROSE 5% [Suspect]
     Route: 042
     Dates: start: 20100402, end: 20100402
  3. SODIUM CHLORIDE 0.9% IN PLASTIC CONTAINER [Suspect]
     Indication: THERMAL BURN
     Route: 042
     Dates: start: 20100402, end: 20100402

REACTIONS (1)
  - CHILLS [None]
